FAERS Safety Report 11074094 (Version 1)
Quarter: 2015Q2

REPORT INFORMATION
  Report Type: Spontaneous
  Country: US (occurrence: None)
  Receive Date: 20150428
  Receipt Date: 20150428
  Transmission Date: 20150821
  Serious: Yes (Death, Life-Threatening, Hospitalization, Disabling)
  Sender: FDA-Public Use
  Company Number: None

PATIENT
  Age: 46 Year
  Sex: Female
  Weight: 73.6 kg

DRUGS (2)
  1. PEMBROLIZUMAB. [Suspect]
     Active Substance: PEMBROLIZUMAB
     Indication: METASTATIC MALIGNANT MELANOMA
     Route: 042
     Dates: start: 20150305, end: 20150305
  2. IPILIMUMAB [Suspect]
     Active Substance: IPILIMUMAB
     Indication: METASTATIC MALIGNANT MELANOMA
     Route: 042
     Dates: start: 20141113, end: 20150115

REACTIONS (11)
  - Diarrhoea [None]
  - Metastatic malignant melanoma [None]
  - Aspiration [None]
  - Malignant neoplasm progression [None]
  - Abdominal sepsis [None]
  - Respiratory failure [None]
  - Blood lactic acid increased [None]
  - Asthenia [None]
  - Autoimmune colitis [None]
  - Large intestine perforation [None]
  - Abdominal pain [None]

NARRATIVE: CASE EVENT DATE: 20150327
